FAERS Safety Report 6539090-9 (Version None)
Quarter: 2010Q1

REPORT INFORMATION
  Report Type: 
  Country: None (occurrence: None)
  Receive Date: 20100115
  Receipt Date: 20100106
  Transmission Date: 20100710
  Serious: Yes (Other)
  Sender: FDA-Public Use
  Company Number: PHEH2010US00481

PATIENT
  Sex: Female

DRUGS (4)
  1. RECLAST [Suspect]
     Dosage: UNK
     Dates: start: 20091229
  2. ASPIRIN [Concomitant]
     Dosage: 81 MG
  3. SYNTHROID [Concomitant]
  4. PREDNISONE [Concomitant]

REACTIONS (5)
  - ASTHENIA [None]
  - EPISTAXIS [None]
  - HAEMATOMA [None]
  - MASS [None]
  - MOUTH HAEMORRHAGE [None]
